FAERS Safety Report 11205514 (Version 1)
Quarter: 2015Q2

REPORT INFORMATION
  Report Type: Spontaneous
  Country: US (occurrence: None)
  Receive Date: 20150618
  Receipt Date: 20150618
  Transmission Date: 20150821
  Serious: Yes (Hospitalization)
  Sender: FDA-Public Use
  Company Number: None

PATIENT
  Age: 85 Year
  Sex: Female
  Weight: 58.97 kg

DRUGS (14)
  1. DIOVAN [Concomitant]
     Active Substance: VALSARTAN
  2. ASPIRIN. [Concomitant]
     Active Substance: ASPIRIN
  3. COLACE [Concomitant]
     Active Substance: DOCUSATE SODIUM
  4. AMBIEN [Suspect]
     Active Substance: ZOLPIDEM TARTRATE
     Indication: SLEEP DISORDER
     Dosage: 1 TABLET QHS/BEDTIME, ORAL
     Route: 048
  5. AMBIEN [Concomitant]
     Active Substance: ZOLPIDEM TARTRATE
  6. FENTANYL 75 MCG [Suspect]
     Active Substance: FENTANYL
     Indication: PAIN
     Dosage: APPLY 1 PATCH Q48HR
     Route: 062
  7. COREG [Concomitant]
     Active Substance: CARVEDILOL
  8. CALCIUM + VIT D SUPLLEMENT [Concomitant]
  9. LASIX [Concomitant]
     Active Substance: FUROSEMIDE
  10. CATEPRESSAN [Concomitant]
     Active Substance: CLONIDINE
  11. FERROUS GLUCONATE [Concomitant]
     Active Substance: FERROUS GLUCONATE
  12. VITAMIN B12 [Concomitant]
     Active Substance: CYANOCOBALAMIN
  13. XANAX [Concomitant]
     Active Substance: ALPRAZOLAM
  14. PRILOSEC [Concomitant]
     Active Substance: OMEPRAZOLE MAGNESIUM

REACTIONS (4)
  - Mental status changes [None]
  - Fall [None]
  - Inappropriate schedule of drug administration [None]
  - Contusion [None]

NARRATIVE: CASE EVENT DATE: 20150601
